FAERS Safety Report 22308001 (Version 1)
Quarter: 2023Q2

REPORT INFORMATION
  Report Type: Spontaneous
  Country: US (occurrence: US)
  Receive Date: 20230511
  Receipt Date: 20230511
  Transmission Date: 20230722
  Serious: No
  Sender: FDA-Public Use
  Company Number: US-Amarin Pharma  Inc.-2023AMR000075

PATIENT
  Sex: Male

DRUGS (2)
  1. VASCEPA [Suspect]
     Active Substance: ICOSAPENT ETHYL
     Indication: Blood cholesterol
     Route: 048
  2. VASCEPA [Suspect]
     Active Substance: ICOSAPENT ETHYL

REACTIONS (4)
  - Retching [Unknown]
  - Poor quality product administered [Unknown]
  - Product odour abnormal [Unknown]
  - Product physical issue [Unknown]
